FAERS Safety Report 13915400 (Version 2)
Quarter: 2017Q3

REPORT INFORMATION
  Report Type: Spontaneous
  Country: CA (occurrence: CA)
  Receive Date: 20170829
  Receipt Date: 20170912
  Transmission Date: 20171127
  Serious: Yes (Life-Threatening, Hospitalization)
  Sender: FDA-Public Use
  Company Number: CA-IGSA-SR10005204

PATIENT
  Age: 70 Year
  Sex: Female

DRUGS (10)
  1. PLASBUMIN-5 [Suspect]
     Active Substance: ALBUMIN HUMAN
     Indication: GLOMERULONEPHRITIS MEMBRANOPROLIFERATIVE
     Dosage: 50 ML, SINGLE
     Route: 042
     Dates: start: 20170531, end: 20170531
  2. ALBUREX [Suspect]
     Active Substance: ALBUMIN HUMAN
     Indication: GLOMERULONEPHRITIS MEMBRANOPROLIFERATIVE
     Dosage: 125 ML, UNK
     Dates: start: 20170531, end: 20170531
  3. ALDACTONE [Concomitant]
     Active Substance: SPIRONOLACTONE
     Indication: PREMEDICATION
     Dosage: 25 MG, UNKNOWN
     Route: 048
     Dates: start: 20170531, end: 20170531
  4. CALCIUM SANDOZ                     /07357001/ [Concomitant]
     Indication: PREMEDICATION
     Dosage: 500 MG, SINGLE
     Route: 048
     Dates: start: 20170531, end: 20170531
  5. PREDNISONE. [Concomitant]
     Active Substance: PREDNISONE
     Indication: PREMEDICATION
     Dosage: 80 MG, SINGLE
     Route: 048
     Dates: start: 20170531, end: 20170531
  6. PANTOLOC                           /01263204/ [Concomitant]
     Active Substance: PANTOPRAZOLE SODIUM
     Dosage: 40 UNK, UNK
     Route: 048
  7. RITUXAN [Concomitant]
     Active Substance: RITUXIMAB
     Dosage: UNK
  8. FRAGMIN [Concomitant]
     Active Substance: DALTEPARIN SODIUM
  9. PLASBUMIN-5 [Suspect]
     Active Substance: ALBUMIN HUMAN
     Indication: CRYOGLOBULINAEMIA
     Dosage: UNK
     Route: 042
     Dates: start: 20170529, end: 20170529
  10. ALBUREX [Suspect]
     Active Substance: ALBUMIN HUMAN
     Indication: CRYOGLOBULINAEMIA

REACTIONS (5)
  - Hypotension [Recovered/Resolved]
  - Shock [Recovered/Resolved]
  - Vomiting [Recovered/Resolved]
  - Hypovolaemia [Recovered/Resolved]
  - Nausea [Recovered/Resolved]

NARRATIVE: CASE EVENT DATE: 20170531
